FAERS Safety Report 7564961-4 (Version None)
Quarter: 2011Q2

REPORT INFORMATION
  Report Type: 
  Country: None (occurrence: None)
  Receive Date: 20110622
  Receipt Date: 20110304
  Transmission Date: 20111010
  Serious: Yes (Other)
  Sender: FDA-Public Use
  Company Number: US-MYLANLABS-2011S1004435

PATIENT
  Age: 60 Year
  Sex: Male

DRUGS (9)
  1. SYNTHROID [Concomitant]
     Indication: HYPOTHYROIDISM
     Route: 048
     Dates: start: 20110104
  2. DITROPAN XL [Concomitant]
     Indication: URINARY INCONTINENCE
     Route: 048
     Dates: start: 20100825
  3. DEPAKOTE [Concomitant]
     Indication: PSYCHOTIC DISORDER
     Route: 048
     Dates: start: 20101001
  4. CLOZAPINE [Suspect]
     Route: 048
     Dates: start: 20090826, end: 20110301
  5. KLONOPIN [Concomitant]
     Indication: SCHIZOPHRENIA
     Route: 048
     Dates: start: 20090826
  6. PROZAC [Concomitant]
     Indication: PSYCHOTIC DISORDER
     Route: 048
     Dates: start: 20101130
  7. WARFARIN SODIUM [Concomitant]
     Route: 048
     Dates: start: 20110216
  8. CLOZAPINE [Suspect]
     Indication: SCHIZOPHRENIA
     Route: 048
     Dates: start: 20090826, end: 20110301
  9. PROLIXIN /00000602/ [Concomitant]
     Indication: PSYCHOTIC DISORDER
     Route: 048
     Dates: start: 20101208

REACTIONS (1)
  - GRANULOCYTOPENIA [None]
